FAERS Safety Report 12983073 (Version 1)
Quarter: 2016Q4

REPORT INFORMATION
  Report Type: Spontaneous
  Country: US (occurrence: US)
  Receive Date: 20161129
  Receipt Date: 20161129
  Transmission Date: 20170207
  Serious: Yes (Other)
  Sender: FDA-Public Use
  Company Number: US-MALLINCKRODT-T201602572

PATIENT
  Sex: Male
  Weight: 68 kg

DRUGS (4)
  1. PERCOCET [Concomitant]
     Active Substance: ACETAMINOPHEN\OXYCODONE HYDROCHLORIDE
     Dosage: 10/325
  2. ABILIFY [Concomitant]
     Active Substance: ARIPIPRAZOLE
  3. FENTANYL TRANSDERMAL SYSTEM [Suspect]
     Active Substance: FENTANYL
     Indication: PAIN
     Dosage: 50 MCG/HR, ONE PATCH EVERY 3 DAYS
     Route: 062
     Dates: start: 201603
  4. CYMBALTA [Concomitant]
     Active Substance: DULOXETINE HYDROCHLORIDE

REACTIONS (15)
  - Loss of consciousness [Unknown]
  - Application site erosion [Not Recovered/Not Resolved]
  - Application site pruritus [Not Recovered/Not Resolved]
  - Application site irritation [Not Recovered/Not Resolved]
  - Application site scab [Not Recovered/Not Resolved]
  - Product adhesion issue [Not Recovered/Not Resolved]
  - Drug ineffective [Not Recovered/Not Resolved]
  - Product quality issue [Unknown]
  - Application site erythema [Not Recovered/Not Resolved]
  - Feeling abnormal [Unknown]
  - Application site pain [Not Recovered/Not Resolved]
  - Incorrect drug administration duration [Unknown]
  - Wrong technique in product usage process [Unknown]
  - Drug effect increased [Not Recovered/Not Resolved]
  - Pyrexia [Recovered/Resolved]

NARRATIVE: CASE EVENT DATE: 2016
